FAERS Safety Report 8583603-2 (Version None)
Quarter: 2012Q3

REPORT INFORMATION
  Report Type: 
  Country: None (occurrence: None)
  Receive Date: 20120809
  Receipt Date: 20120730
  Transmission Date: 20120928
  Serious: Yes (Other)
  Sender: FDA-Public Use
  Company Number: CA-BRISTOL-MYERS SQUIBB COMPANY-16817447

PATIENT
  Age: 59 Year
  Sex: Male

DRUGS (2)
  1. GEMCITABINE HYDROCHLORIDE [Suspect]
     Indication: TRANSITIONAL CELL CARCINOMA
  2. CISPLATIN [Suspect]
     Indication: TRANSITIONAL CELL CARCINOMA

REACTIONS (1)
  - HAEMOPTYSIS [None]
